FAERS Safety Report 12806527 (Version 1)
Quarter: 2016Q4

REPORT INFORMATION
  Report Type: Spontaneous
  Country: US (occurrence: US)
  Receive Date: 20161004
  Receipt Date: 20161004
  Transmission Date: 20170207
  Serious: No
  Sender: FDA-Public Use
  Company Number: US-JNJFOC-20160917256

PATIENT
  Age: 73 Year
  Sex: Female
  Weight: 47.63 kg

DRUGS (3)
  1. WOMENS ROGAINE UNSCENTED [Suspect]
     Active Substance: MINOXIDIL
     Route: 061
  2. WOMENS ROGAINE UNSCENTED [Suspect]
     Active Substance: MINOXIDIL
     Indication: ALOPECIA
     Dosage: 1/2 CAPFULL
     Route: 061
     Dates: end: 20160826
  3. PREDNISONE. [Concomitant]
     Active Substance: PREDNISONE
     Indication: POSTOPERATIVE CARE
     Dosage: 6 WKS
     Route: 065

REACTIONS (4)
  - Hair growth abnormal [Not Recovered/Not Resolved]
  - Therapeutic product ineffective for unapproved indication [Not Recovered/Not Resolved]
  - Intentional product misuse [Not Recovered/Not Resolved]
  - Heart rate increased [Not Recovered/Not Resolved]
